FAERS Safety Report 17654905 (Version 1)
Quarter: 2020Q2

REPORT INFORMATION
  Report Type: Spontaneous
  Country: US (occurrence: US)
  Receive Date: 20200409
  Receipt Date: 20200409
  Transmission Date: 20200713
  Serious: No
  Sender: FDA-Public Use
  Company Number: None

PATIENT
  Age: 50 Year
  Sex: Female

DRUGS (1)
  1. CAPECITABINE TAB 150MG [Suspect]
     Active Substance: CAPECITABINE
     Route: 048
     Dates: start: 2020

REACTIONS (3)
  - Nausea [None]
  - Palmar-plantar erythrodysaesthesia syndrome [None]
  - Diarrhoea [None]

NARRATIVE: CASE EVENT DATE: 20200409
